FAERS Safety Report 5533234-3 (Version None)
Quarter: 2007Q4

REPORT INFORMATION
  Report Type: 
  Country: None (occurrence: None)
  Receive Date: 20071204
  Receipt Date: 20071128
  Transmission Date: 20080405
  Serious: Yes (Congenital Anomaly)
  Sender: FDA-Public Use
  Company Number: A0661742A

PATIENT
  Sex: Male

DRUGS (7)
  1. PAXIL [Suspect]
     Indication: ANXIETY
     Dates: start: 20010101, end: 20020101
  2. PAXIL CR [Suspect]
     Indication: ANXIETY
     Dosage: 25MG PER DAY
     Dates: start: 20021015, end: 20030101
  3. PRENATAL VITAMINS [Concomitant]
     Dates: start: 20021001, end: 20021201
  4. FERROUS SULFATE TAB [Concomitant]
     Dates: start: 20021001
  5. PROMETHEGAN [Concomitant]
     Dates: start: 20021101, end: 20030605
  6. TERBUTALINE SULFATE [Concomitant]
     Dates: start: 20030301
  7. AFEDITAB [Concomitant]
     Dates: start: 20030301

REACTIONS (12)
  - ANGIOPATHY [None]
  - AORTIC VALVE INCOMPETENCE [None]
  - ATRIAL SEPTAL DEFECT [None]
  - CONGENITAL ANOMALY [None]
  - DEVELOPMENTAL DELAY [None]
  - DRUG EXPOSURE DURING PREGNANCY [None]
  - DYSPNOEA [None]
  - EPIGLOTTIC CYST [None]
  - PATENT DUCTUS ARTERIOSUS [None]
  - PULMONARY VALVE STENOSIS [None]
  - TRANSPOSITION OF THE GREAT VESSELS [None]
  - VENTRICULAR SEPTAL DEFECT [None]
